FAERS Safety Report 6726561-5 (Version None)
Quarter: 2010Q2

REPORT INFORMATION
  Report Type: 
  Country: None (occurrence: None)
  Receive Date: 20100514
  Receipt Date: 20100318
  Transmission Date: 20101027
  Serious: No
  Sender: FDA-Public Use
  Company Number: US-BRISTOL-MYERS SQUIBB COMPANY-15025000

PATIENT
  Age: 7 Decade
  Sex: Female

DRUGS (3)
  1. IXEMPRA KIT [Suspect]
     Indication: BREAST CANCER
     Dosage: FIRST CYCLE ON 04FEB10,56MG;26FEB10,45MG.
     Dates: start: 20100204
  2. XELODA [Suspect]
     Dosage: FIRST CYCLE ON 04FEB10,1000MG;26FEB10,1000MG.
     Dates: start: 20100204
  3. OXYCODONE [Concomitant]

REACTIONS (1)
  - SKIN DISCOLOURATION [None]
